FAERS Safety Report 7508993-0 (Version None)
Quarter: 2011Q2

REPORT INFORMATION
  Report Type: 
  Country: None (occurrence: None)
  Receive Date: 20110527
  Receipt Date: 20110520
  Transmission Date: 20111010
  Serious: Yes (Hospitalization)
  Sender: FDA-Public Use
  Company Number: JP-SANOFI-AVENTIS-2011SA029074

PATIENT
  Age: 62 Year
  Sex: Male

DRUGS (2)
  1. JANUVIA [Suspect]
     Route: 048
     Dates: start: 20100501
  2. AMARYL [Suspect]
     Route: 048
     Dates: start: 20100501, end: 20100601

REACTIONS (2)
  - PYREXIA [None]
  - MALAISE [None]
